FAERS Safety Report 7202166-7 (Version None)
Quarter: 2010Q4

REPORT INFORMATION
  Report Type: 
  Country: None (occurrence: None)
  Receive Date: 20101229
  Receipt Date: 20101216
  Transmission Date: 20110411
  Serious: Yes (Hospitalization)
  Sender: FDA-Public Use
  Company Number: PHHY2010FR85760

PATIENT
  Sex: Male

DRUGS (7)
  1. TEGRETOL [Suspect]
     Indication: EPILEPSY
     Dosage: 1200 MG, QD
     Route: 048
     Dates: end: 20100715
  2. ACETAMINOPHEN W/ PROPOXYPHENE HCL [Interacting]
     Indication: TOOTHACHE
     Dosage: UNK
     Route: 048
     Dates: start: 20100713, end: 20100715
  3. BIRODOGYL [Concomitant]
     Dosage: UNK
     Dates: start: 20100713
  4. PARACETAMOL [Concomitant]
     Dosage: UNK
     Dates: start: 20100714
  5. ABILIFY [Concomitant]
     Dosage: 10 MG, QD
  6. ESCITALOPRAM [Concomitant]
     Dosage: 10 MG, QD
  7. VALIUM [Concomitant]
     Dosage: 30 MG/DAY

REACTIONS (5)
  - ANTICONVULSANT DRUG LEVEL INCREASED [None]
  - CEREBELLAR SYNDROME [None]
  - DRUG INTERACTION [None]
  - DYSSTASIA [None]
  - NYSTAGMUS [None]
